FAERS Safety Report 20704165 (Version 1)
Quarter: 2022Q2

REPORT INFORMATION
  Report Type: Spontaneous
  Country: FR (occurrence: FR)
  Receive Date: 20220413
  Receipt Date: 20220413
  Transmission Date: 20220720
  Serious: Yes (Hospitalization, Other)
  Sender: FDA-Public Use
  Company Number: FR-AFSSAPS-GR20220931

PATIENT
  Age: 37 Year
  Sex: Female
  Weight: 170 kg

DRUGS (2)
  1. HYDROXYZINE [Suspect]
     Active Substance: HYDROXYZINE HYDROCHLORIDE
     Indication: Product used for unknown indication
     Dosage: NP
     Route: 048
     Dates: start: 20220214, end: 20220214
  2. VENLAFAXINE [Suspect]
     Active Substance: VENLAFAXINE HYDROCHLORIDE
     Indication: Product used for unknown indication
     Dosage: 140 DOSAGE FORM
     Route: 048
     Dates: start: 20220214, end: 20220214

REACTIONS (7)
  - Hemiparesis [Not Recovered/Not Resolved]
  - Poisoning deliberate [Recovered/Resolved]
  - Renal tubular necrosis [Recovering/Resolving]
  - Cardiogenic shock [Recovered/Resolved]
  - Serotonin syndrome [Recovered/Resolved]
  - Seizure [Recovered/Resolved]
  - Somnolence [Recovered/Resolved]

NARRATIVE: CASE EVENT DATE: 20220214
